FAERS Safety Report 15404313 (Version 1)
Quarter: 2018Q3

REPORT INFORMATION
  Report Type: Spontaneous
  Country: US (occurrence: US)
  Receive Date: 20180912
  Receipt Date: 20180912
  Transmission Date: 20181010
  Serious: No
  Sender: FDA-Public Use
  Company Number: None

PATIENT
  Age: 54 Year
  Sex: Female

DRUGS (1)
  1. TEMOZOLOMIDE CAP [Suspect]
     Active Substance: TEMOZOLOMIDE
     Dates: start: 201805

REACTIONS (5)
  - Nausea [None]
  - Syncope [None]
  - Decreased appetite [None]
  - Dehydration [None]
  - Dizziness [None]

NARRATIVE: CASE EVENT DATE: 20180912
